FAERS Safety Report 13399324 (Version 1)
Quarter: 2017Q2

REPORT INFORMATION
  Report Type: Other
  Country: GB (occurrence: GB)
  Receive Date: 20170404
  Receipt Date: 20170404
  Transmission Date: 20170830
  Serious: Yes (Hospitalization, Other)
  Sender: FDA-Public Use
  Company Number: GB-LUPIN PHARMACEUTICALS INC.-E2B_00005692

PATIENT
  Age: 45 Year
  Sex: Female

DRUGS (2)
  1. SERTRALINE [Suspect]
     Active Substance: SERTRALINE HYDROCHLORIDE
     Indication: DEPRESSION
  2. SERTRALINE [Suspect]
     Active Substance: SERTRALINE HYDROCHLORIDE
     Indication: ANXIETY
     Dosage: 50 MG,UNK,UNKNOWN
     Route: 048
     Dates: start: 20160309, end: 20160602

REACTIONS (3)
  - Discomfort [Recovered/Resolved]
  - Photophobia [Recovered/Resolved]
  - Mydriasis [Recovered/Resolved]
